FAERS Safety Report 16640411 (Version 2)
Quarter: 2019Q3

REPORT INFORMATION
  Report Type: Report from Study
  Country: IT (occurrence: IT)
  Receive Date: 20190728
  Receipt Date: 20190925
  Transmission Date: 20191004
  Serious: Yes (Hospitalization, Other)
  Sender: FDA-Public Use
  Company Number: IT-BRISTOL-MYERS SQUIBB COMPANY-BMS-2019-073409

PATIENT
  Age: 82 Year
  Sex: Male

DRUGS (4)
  1. SIMVASTATIN. [Concomitant]
     Active Substance: SIMVASTATIN
     Indication: PRODUCT USED FOR UNKNOWN INDICATION
     Dosage: 20 MILLIGRAM
     Route: 048
  2. AMIODARONE [Concomitant]
     Active Substance: AMIODARONE
     Indication: PRODUCT USED FOR UNKNOWN INDICATION
     Dosage: 200 MILLIGRAM
     Route: 048
  3. ATENOLOL. [Concomitant]
     Active Substance: ATENOLOL
     Indication: PRODUCT USED FOR UNKNOWN INDICATION
     Dosage: 100 MILLIGRAM
     Route: 048
  4. APIXABAN [Suspect]
     Active Substance: APIXABAN
     Indication: CEREBROVASCULAR ACCIDENT PROPHYLAXIS
     Dosage: 5 MILLIGRAM PER DAY
     Route: 048
     Dates: end: 20190103

REACTIONS (4)
  - Asthenia [Recovering/Resolving]
  - International normalised ratio abnormal [Unknown]
  - Psychomotor skills impaired [Recovering/Resolving]
  - Intracranial haematoma [Recovering/Resolving]

NARRATIVE: CASE EVENT DATE: 20190103
